FAERS Safety Report 6045594-8 (Version None)
Quarter: 2009Q1

REPORT INFORMATION
  Report Type: 
  Country: None (occurrence: None)
  Receive Date: 20090121
  Receipt Date: 20090112
  Transmission Date: 20090719
  Serious: Yes (Hospitalization)
  Sender: FDA-Public Use
  Company Number: SE-JNJFOC-20090102177

PATIENT
  Age: 16 Year
  Sex: Male

DRUGS (4)
  1. REMICADE [Suspect]
     Route: 042
  2. REMICADE [Suspect]
     Indication: INFLAMMATORY BOWEL DISEASE
     Route: 042
  3. IMUREL [Suspect]
     Indication: INFLAMMATORY BOWEL DISEASE
     Route: 048
  4. PREDNISOLONE [Suspect]
     Indication: INFLAMMATORY BOWEL DISEASE
     Route: 048

REACTIONS (2)
  - CYTOMEGALOVIRUS INFECTION [None]
  - TUBERCULOSIS [None]
